FAERS Safety Report 13625952 (Version 1)
Quarter: 2017Q2

REPORT INFORMATION
  Report Type: Spontaneous
  Country: SE (occurrence: SE)
  Receive Date: 20170608
  Receipt Date: 20170608
  Transmission Date: 20170830
  Serious: Yes (Death)
  Sender: FDA-Public Use
  Company Number: SE-TEVA-774037ISR

PATIENT
  Age: 27 Year
  Sex: Male

DRUGS (5)
  1. METHADONE [Concomitant]
     Active Substance: METHADONE HYDROCHLORIDE
  2. PREGABALIN. [Suspect]
     Active Substance: PREGABALIN
  3. BUPRENORPHINE. [Suspect]
     Active Substance: BUPRENORPHINE
  4. DIAZEPAM. [Suspect]
     Active Substance: DIAZEPAM
  5. METAMFETAMINE [Concomitant]
     Active Substance: METHAMPHETAMINE

REACTIONS (1)
  - Toxicity to various agents [Fatal]
